FAERS Safety Report 10236385 (Version 1)
Quarter: 2014Q1

REPORT INFORMATION
  Report Type: Spontaneous
  Country: US (occurrence: None)
  Receive Date: 20140306
  Receipt Date: 20140306
  Transmission Date: 20141002
  Serious: Yes (Other)
  Sender: FDA-Public Use
  Company Number: 163-21880-13014941

PATIENT
  Age: 55 Year
  Sex: Male
  Weight: 75.84 kg

DRUGS (2)
  1. REVLIMID (LENALIDOMIDE) (15 MILLIGRAM, CAPSULES) [Suspect]
     Indication: PLASMA CELL MYELOMA
     Dosage: 21 IN 28 D
     Route: 048
     Dates: start: 20110908
  2. ASA (ACETYLSALICYLIC ACID) [Concomitant]

REACTIONS (2)
  - Hernia [None]
  - Bronchitis [None]
